FAERS Safety Report 5628043-0 (Version None)
Quarter: 2008Q1

REPORT INFORMATION
  Report Type: 
  Country: None (occurrence: None)
  Receive Date: 20080215
  Receipt Date: 20080208
  Transmission Date: 20080703
  Serious: Yes (Other)
  Sender: FDA-Public Use
  Company Number: US-ELI_LILLY_AND_COMPANY-US200802001899

PATIENT
  Sex: Female

DRUGS (4)
  1. HUMULIN N [Suspect]
     Indication: DIABETES MELLITUS
  2. HUMULIN R [Suspect]
     Indication: DIABETES MELLITUS
  3. LANTUS [Concomitant]
  4. ARTIFICIAL TEARS [Concomitant]

REACTIONS (3)
  - EYE HAEMORRHAGE [None]
  - IRIS ATROPHY [None]
  - MACULAR DEGENERATION [None]
